FAERS Safety Report 6504170-0 (Version None)
Quarter: 2009Q4

REPORT INFORMATION
  Report Type: 
  Country: None (occurrence: None)
  Receive Date: 20091217
  Receipt Date: 20091106
  Transmission Date: 20100525
  Serious: Yes (Death, Other)
  Sender: FDA-Public Use
  Company Number: US-BAXTER-2009BH013651

PATIENT
  Age: 61 Year
  Sex: Male
  Weight: 65 kg

DRUGS (45)
  1. HEPARIN SODIUM INJECTION [Suspect]
     Indication: THROMBOSIS PROPHYLAXIS
     Route: 058
     Dates: start: 20080705, end: 20080705
  2. HEPARIN SODIUM INJECTION [Suspect]
     Route: 058
     Dates: start: 20080706, end: 20080706
  3. HEPARIN SODIUM INJECTION [Suspect]
     Route: 058
     Dates: start: 20080706, end: 20080706
  4. HEPARIN SODIUM INJECTION [Suspect]
     Route: 058
     Dates: start: 20080706, end: 20080706
  5. HEPARIN SODIUM INJECTION [Suspect]
     Route: 058
     Dates: start: 20080707, end: 20080707
  6. HEPARIN SODIUM INJECTION [Suspect]
     Route: 058
     Dates: start: 20080707, end: 20080707
  7. HEPARIN SODIUM INJECTION [Suspect]
     Route: 058
     Dates: start: 20080707, end: 20080707
  8. HEPARIN SODIUM INJECTION [Suspect]
     Route: 058
     Dates: start: 20080708, end: 20080708
  9. HEPARIN SODIUM INJECTION [Suspect]
     Route: 058
     Dates: start: 20080708, end: 20080708
  10. HEPARIN SODIUM INJECTION [Suspect]
     Route: 058
     Dates: start: 20080708, end: 20080708
  11. HEPARIN SODIUM INJECTION [Suspect]
     Route: 058
     Dates: start: 20080709, end: 20080709
  12. HEPARIN SODIUM INJECTION [Suspect]
     Route: 058
     Dates: start: 20080709, end: 20080709
  13. HEPARIN SODIUM INJECTION [Suspect]
     Route: 058
     Dates: start: 20080709, end: 20080709
  14. HEPARIN SODIUM INJECTION [Suspect]
     Route: 058
     Dates: start: 20080711, end: 20080711
  15. HEPARIN SODIUM INJECTION [Suspect]
     Route: 058
     Dates: start: 20080711, end: 20080711
  16. HEPARIN SODIUM INJECTION [Suspect]
     Route: 058
     Dates: start: 20080711, end: 20080711
  17. HEPARIN SODIUM INJECTION [Suspect]
     Route: 058
     Dates: start: 20080712, end: 20080712
  18. HEPARIN SODIUM INJECTION [Suspect]
     Route: 058
     Dates: start: 20080712, end: 20080712
  19. HEPARIN SODIUM INJECTION [Suspect]
     Route: 058
     Dates: start: 20080712, end: 20080712
  20. HEPARIN SODIUM INJECTION [Suspect]
     Route: 058
     Dates: start: 20080713, end: 20080713
  21. HEPARIN SODIUM INJECTION [Suspect]
     Route: 058
     Dates: start: 20080713, end: 20080713
  22. HEPARIN SODIUM INJECTION [Suspect]
     Route: 058
     Dates: start: 20080713, end: 20080713
  23. HEPARIN SODIUM INJECTION [Suspect]
     Route: 058
     Dates: start: 20080714, end: 20080714
  24. HEPARIN SODIUM INJECTION [Suspect]
     Route: 058
     Dates: start: 20080714, end: 20080714
  25. HEPARIN SODIUM INJECTION [Suspect]
     Route: 058
     Dates: start: 20080714, end: 20080714
  26. HEPARIN SODIUM INJECTION [Suspect]
     Route: 058
     Dates: start: 20080715, end: 20080715
  27. ARGATROBAN [Suspect]
     Indication: DRUG USE FOR UNKNOWN INDICATION
     Route: 042
     Dates: start: 20080715, end: 20080717
  28. LOVENOX [Suspect]
     Indication: THROMBOSIS PROPHYLAXIS
     Route: 058
     Dates: start: 20080601, end: 20080601
  29. PREDNISONE [Concomitant]
     Indication: DRUG USE FOR UNKNOWN INDICATION
     Route: 048
  30. PLAQUENIL [Concomitant]
     Indication: DRUG USE FOR UNKNOWN INDICATION
     Route: 048
  31. ULTRAM [Concomitant]
     Indication: DRUG USE FOR UNKNOWN INDICATION
     Route: 048
  32. PAXIL [Concomitant]
     Indication: DRUG USE FOR UNKNOWN INDICATION
     Route: 048
  33. MULTI-VITAMINS [Concomitant]
     Indication: DRUG USE FOR UNKNOWN INDICATION
     Route: 048
  34. ST MARY'S THISTLE [Concomitant]
     Indication: DRUG USE FOR UNKNOWN INDICATION
     Route: 048
  35. ASCORBIC ACID [Concomitant]
     Indication: DRUG USE FOR UNKNOWN INDICATION
     Route: 048
  36. VITAMIN D [Concomitant]
     Indication: DRUG USE FOR UNKNOWN INDICATION
     Route: 048
  37. CALTRATE + D [Concomitant]
     Indication: DRUG USE FOR UNKNOWN INDICATION
     Route: 048
  38. ASPIRIN [Concomitant]
     Indication: DRUG USE FOR UNKNOWN INDICATION
     Route: 048
  39. LOVAZA [Concomitant]
     Indication: DRUG USE FOR UNKNOWN INDICATION
     Route: 048
  40. DORIZONE [Concomitant]
     Indication: DRUG USE FOR UNKNOWN INDICATION
     Route: 065
  41. PAREXITINE HCL [Concomitant]
     Indication: DRUG USE FOR UNKNOWN INDICATION
     Route: 065
  42. METHOTREXATE [Concomitant]
     Indication: DRUG USE FOR UNKNOWN INDICATION
     Route: 065
  43. HYDROXYCHLOROQUINE SULFATE [Concomitant]
     Indication: DRUG USE FOR UNKNOWN INDICATION
     Route: 065
  44. VITAMINS, OTHER COMBINATIONS [Concomitant]
     Indication: DRUG USE FOR UNKNOWN INDICATION
     Route: 065
  45. FOSAMAX [Concomitant]
     Indication: DRUG USE FOR UNKNOWN INDICATION
     Route: 048

REACTIONS (8)
  - CHRONIC OBSTRUCTIVE PULMONARY DISEASE [None]
  - GASTROINTESTINAL HAEMORRHAGE [None]
  - HEPARIN-INDUCED THROMBOCYTOPENIA [None]
  - PNEUMONIA [None]
  - PNEUMOTHORAX [None]
  - RENAL FAILURE ACUTE [None]
  - RESPIRATORY FAILURE [None]
  - STAPHYLOCOCCAL SEPSIS [None]
